FAERS Safety Report 6532188-0 (Version None)
Quarter: 2010Q1

REPORT INFORMATION
  Report Type: 
  Country: None (occurrence: None)
  Receive Date: 20100108
  Receipt Date: 20100108
  Transmission Date: 20100710
  Serious: Yes (Other)
  Sender: FDA-Public Use
  Company Number: US-RB-024101-2009

PATIENT
  Sex: Male
  Weight: 78.7 kg

DRUGS (1)
  1. BUPRENORPHINE AND NALOXONE [Suspect]
     Indication: DRUG DEPENDENCE
     Dosage: 8MG/2MG
     Route: 060
     Dates: start: 20091019, end: 20091019

REACTIONS (1)
  - SYNCOPE [None]
